FAERS Safety Report 5477795-1 (Version None)
Quarter: 2007Q4

REPORT INFORMATION
  Report Type: 
  Country: None (occurrence: None)
  Receive Date: 20071002
  Receipt Date: 20070913
  Transmission Date: 20080405
  Serious: Yes (Other)
  Sender: FDA-Public Use
  Company Number: 2007EU002050

PATIENT
  Age: 62 Year
  Sex: Female

DRUGS (3)
  1. TACROLIMUS [Suspect]
     Indication: RENAL TRANSPLANT
     Dates: start: 20020501, end: 20070101
  2. MYCOPHENOLATE MOFETIL [Suspect]
     Indication: RENAL TRANSPLANT
     Dates: start: 20020501, end: 20070101
  3. PREDNISONE [Suspect]
     Indication: RENAL TRANSPLANT
     Dates: start: 20020501

REACTIONS (2)
  - KAPOSI'S SARCOMA [None]
  - PERICARDIAL EFFUSION [None]
